FAERS Safety Report 18023322 (Version 2)
Quarter: 2020Q3

REPORT INFORMATION
  Report Type: Report from Study
  Country: US (occurrence: US)
  Receive Date: 20200714
  Receipt Date: 20200814
  Transmission Date: 20201103
  Serious: Yes (Other)
  Sender: FDA-Public Use
  Company Number: US-SEATTLE GENETICS-2020SGN02926

PATIENT
  Sex: Female

DRUGS (1)
  1. TUCATINIB [Suspect]
     Active Substance: TUCATINIB
     Indication: PRODUCT USED FOR UNKNOWN INDICATION
     Dosage: 50 MG

REACTIONS (10)
  - Drug ineffective [Unknown]
  - Nausea [Recovering/Resolving]
  - Appetite disorder [Unknown]
  - Ageusia [Unknown]
  - Procedural pain [Unknown]
  - Limb discomfort [Unknown]
  - Lymphadenectomy [Unknown]
  - Back pain [Unknown]
  - Post procedural swelling [Unknown]
  - Hepatic cancer [Unknown]
